FAERS Safety Report 5453969-0 (Version None)
Quarter: 2007Q3

REPORT INFORMATION
  Report Type: 
  Country: None (occurrence: None)
  Receive Date: 20070917
  Receipt Date: 20070228
  Transmission Date: 20080115
  Serious: Yes (Other)
  Sender: FDA-Public Use
  Company Number: US-ASTRAZENECA-2005UW13294

PATIENT
  Sex: Female
  Weight: 95 kg

DRUGS (5)
  1. SEROQUEL [Suspect]
     Indication: DEPRESSION
     Route: 048
     Dates: start: 20020205, end: 20040514
  2. SEROQUEL [Suspect]
     Indication: BIPOLAR DISORDER
     Route: 048
     Dates: start: 20020205, end: 20040514
  3. RISPERDAL [Concomitant]
     Dates: start: 20040601, end: 20040701
  4. PAXIL [Concomitant]
  5. TEMAZEPAM [Concomitant]

REACTIONS (2)
  - DIABETES MELLITUS [None]
  - WEIGHT INCREASED [None]
